FAERS Safety Report 9613784 (Version 3)
Quarter: 2014Q1

REPORT INFORMATION
  Report Type: Spontaneous
  Country: JP (occurrence: JP)
  Receive Date: 20131010
  Receipt Date: 20140206
  Transmission Date: 20141002
  Serious: Yes (Hospitalization)
  Sender: FDA-Public Use
  Company Number: PHHY2013JP070246

PATIENT
  Age: 58 Year
  Sex: Female

DRUGS (5)
  1. SANOREX [Suspect]
     Indication: OBESITY
     Dosage: 0.5 MG, DAILY
     Route: 048
     Dates: start: 20130531, end: 20130621
  2. VANCOMYCIN [Concomitant]
     Dosage: UNK UKN, UNK
     Dates: start: 20130531, end: 20130616
  3. CALONAL [Concomitant]
     Dosage: UNK UKN, UNK
     Route: 048
     Dates: start: 20130531, end: 20130622
  4. MEROPEN [Concomitant]
     Dosage: UNK UKN, UNK
     Dates: start: 20130531, end: 20130616
  5. BIO-THREE [Concomitant]
     Dosage: UNK UKN, UNK
     Dates: start: 20130531, end: 20130621

REACTIONS (5)
  - Drug reaction with eosinophilia and systemic symptoms [Recovered/Resolved]
  - Drug eruption [Recovered/Resolved]
  - Face oedema [Unknown]
  - Erythema [Unknown]
  - Pyrexia [Unknown]
